FAERS Safety Report 10690857 (Version 1)
Quarter: 2015Q1

REPORT INFORMATION
  Report Type: Spontaneous
  Country: US (occurrence: None)
  Receive Date: 20150102
  Receipt Date: 20150102
  Transmission Date: 20150720
  Serious: Yes (Other)
  Sender: FDA-Public Use
  Company Number: US-ZYDUS-006223

PATIENT
  Age: 35 Year
  Sex: Male

DRUGS (3)
  1. MIRTAZAPINE(MIRTAZAPINE) [Concomitant]
  2. BUPROPION (BUPROPION) [Suspect]
     Active Substance: BUPROPION
     Dosage: 300.00-MG-1.0DAYS
  3. NORTRIPTYLINE (NORTRIPTYLINE) [Suspect]
     Active Substance: NORTRIPTYLINE
     Indication: MAJOR DEPRESSION

REACTIONS (3)
  - Brugada syndrome [None]
  - Antidepressant drug level above therapeutic [None]
  - Condition aggravated [None]
